FAERS Safety Report 6968097-2 (Version None)
Quarter: 2010Q3

REPORT INFORMATION
  Report Type: 
  Country: None (occurrence: None)
  Receive Date: 20100907
  Receipt Date: 20100811
  Transmission Date: 20110219
  Serious: Yes (Hospitalization)
  Sender: FDA-Public Use
  Company Number: A0879548A

PATIENT
  Age: 72 Year
  Sex: Male

DRUGS (4)
  1. AVANDIA [Suspect]
     Indication: DIABETES MELLITUS
     Route: 048
     Dates: start: 20060301, end: 20061120
  2. LISINOPRIL [Concomitant]
  3. LOPRESSOR [Concomitant]
  4. ASPIRIN [Concomitant]

REACTIONS (15)
  - ABDOMINAL PAIN UPPER [None]
  - ACUTE PRERENAL FAILURE [None]
  - ATELECTASIS [None]
  - BACK PAIN [None]
  - BLOOD PRESSURE INCREASED [None]
  - CEREBRAL ISCHAEMIA [None]
  - CEREBROVASCULAR ACCIDENT [None]
  - CONTUSION [None]
  - DEHYDRATION [None]
  - ELECTROCARDIOGRAM ST-T CHANGE [None]
  - FALL [None]
  - RENAL FAILURE [None]
  - RESPIRATORY DISTRESS [None]
  - THYROID ADENOMA [None]
  - THYROID CYST [None]
